FAERS Safety Report 9889245 (Version 1)
Quarter: 2014Q1

REPORT INFORMATION
  Report Type: Spontaneous
  Country: US (occurrence: US)
  Receive Date: 20140211
  Receipt Date: 20140211
  Transmission Date: 20141002
  Serious: No
  Sender: FDA-Public Use
  Company Number: US-009507513-1402USA004066

PATIENT
  Age: 37 Year
  Sex: Female
  Weight: 52.15 kg

DRUGS (2)
  1. NEXPLANON [Suspect]
     Indication: CONTRACEPTION
     Dosage: IN LEFT ARM
     Route: 059
     Dates: start: 201304
  2. IMPLANON [Suspect]
     Indication: CONTRACEPTION
     Route: 059

REACTIONS (4)
  - Fungal infection [Unknown]
  - Amenorrhoea [Unknown]
  - Vaginal discharge [Unknown]
  - Chlamydial infection [Unknown]
